FAERS Safety Report 7810752-6 (Version None)
Quarter: 2011Q4

REPORT INFORMATION
  Report Type: 
  Country: None (occurrence: None)
  Receive Date: 20111011
  Receipt Date: 20110929
  Transmission Date: 20120403
  Serious: Yes (Life-Threatening)
  Sender: FDA-Public Use
  Company Number: AUR-APL-2011-05267

PATIENT
  Age: 49 Year
  Sex: Male
  Weight: 128 kg

DRUGS (6)
  1. ASPIRIN [Concomitant]
  2. METFORMIN HCL [Concomitant]
  3. CO-DYDRAMOL (PARAMOL-118) [Concomitant]
  4. RAMIPRIL [Concomitant]
  5. VICTOZA [Suspect]
     Indication: DIABETES MELLITUS
     Dosage: (12 MG),SUBCUTANEOUS
     Route: 058
     Dates: start: 20100408
  6. SIMVASTATIN [Suspect]
     Indication: HYPERCHOLESTEROLAEMIA
     Dosage: (40 MG),ORAL
     Route: 048
     Dates: start: 20080814, end: 20110914

REACTIONS (4)
  - MUSCULOSKELETAL PAIN [None]
  - DRUG INTERACTION [None]
  - MYOSITIS [None]
  - BLOOD CREATINE PHOSPHOKINASE INCREASED [None]
